FAERS Safety Report 8763278 (Version 1)
Quarter: 2012Q4

REPORT INFORMATION
  Report Type: 
  Country: NL (occurrence: US)
  Receive Date: 20120831
  Receipt Date: 20120831
  Transmission Date: 20130627
  Serious: Yes (Hospitalization)
  Sender: FDA-Public Use
  Company Number: US-MILLENNIUM PHARMACEUTICALS, INC.-2012-05918

PATIENT
  Age: 44 Year
  Sex: Male
  Weight: 53.97 kg

DRUGS (2)
  1. VELCADE [Suspect]
     Indication: LYMPHOMA
     Dosage: 2.3 mg, UNK
     Route: 042
     Dates: start: 201206
  2. BENDAMUSTINE [Suspect]
     Indication: LYMPHOMA
     Dosage: 123 mg, UNK
     Route: 065
     Dates: start: 201206

REACTIONS (4)
  - Pneumothorax [Recovered/Resolved]
  - Hypertension [Recovered/Resolved]
  - Tachycardia [Recovered/Resolved]
  - Asthenia [Recovered/Resolved]
